FAERS Safety Report 5334648-7 (Version None)
Quarter: 2007Q2

REPORT INFORMATION
  Report Type: 
  Country: None (occurrence: None)
  Receive Date: 20070525
  Receipt Date: 20070516
  Transmission Date: 20071010
  Serious: Yes (Other)
  Sender: FDA-Public Use
  Company Number: B0468122A

PATIENT
  Age: 46 Year
  Sex: Female

DRUGS (8)
  1. TAGAMET [Suspect]
     Indication: GASTRITIS EROSIVE
     Dosage: 200MG THREE TIMES PER DAY
     Route: 048
     Dates: start: 20020404, end: 20060803
  2. OMEPRAZOLE [Concomitant]
     Dates: start: 20060421, end: 20060605
  3. SOFALCONE [Concomitant]
     Dates: start: 20060421, end: 20060803
  4. TIQUIZIUM BROMIDE [Concomitant]
     Dates: start: 20060421, end: 20060803
  5. AZULENE SULFONATE SODIUM L-GLUTAMINE [Concomitant]
     Dates: start: 20060421, end: 20060803
  6. GLUCOSE [Concomitant]
     Dates: start: 20060421
  7. BLOOD EXTRACT [Concomitant]
     Dates: start: 20060421, end: 20060711
  8. METHYLMETHIONINE SULFONIUM CHLORIDE [Concomitant]
     Dates: start: 20060804

REACTIONS (1)
  - HEPATITIS ACUTE [None]
